FAERS Safety Report 9553745 (Version 1)
Quarter: 2013Q3

REPORT INFORMATION
  Report Type: Spontaneous
  Country: US (occurrence: None)
  Receive Date: 20130815
  Receipt Date: 20130815
  Transmission Date: 20140515
  Serious: Yes (Hospitalization, Other)
  Sender: FDA-Public Use
  Company Number: ADR-2013-00612

PATIENT
  Sex: Female

DRUGS (1)
  1. BACLOFEN INTRATHECAL [Suspect]

REACTIONS (15)
  - Body temperature decreased [None]
  - Clonus [None]
  - Altered state of consciousness [None]
  - Discomfort [None]
  - Hypotonia [None]
  - Lethargy [None]
  - Overdose [None]
  - Muscle spasms [None]
  - Hypertonia [None]
  - Muscle tightness [None]
  - Somnolence [None]
  - Therapeutic response decreased [None]
  - Sedation [None]
  - Unevaluable event [None]
  - Convulsion [None]
